FAERS Safety Report 24760226 (Version 1)
Quarter: 2024Q4

REPORT INFORMATION
  Report Type: Spontaneous
  Country: US (occurrence: US)
  Receive Date: 20241220
  Receipt Date: 20241220
  Transmission Date: 20250114
  Serious: No
  Sender: INCYTE
  Company Number: US-INCYTE CORPORATION-2024IN013022

PATIENT

DRUGS (1)
  1. JAKAFI [Suspect]
     Active Substance: RUXOLITINIB
     Indication: Myelofibrosis
     Dosage: 5 MILLIGRAM,TAKE 1 TABLET (5 MG) EVERY OTHER DAY ALTERNATING WITH 2 TABLETS (10 MG) EVERY OTHER DAY
     Route: 048

REACTIONS (1)
  - Device physical property issue [Unknown]
